FAERS Safety Report 8319019-3 (Version None)
Quarter: 2012Q2

REPORT INFORMATION
  Report Type: 
  Country: None (occurrence: None)
  Receive Date: 20120427
  Receipt Date: 20120417
  Transmission Date: 20120825
  Serious: Yes (Death, Life-Threatening, Hospitalization, Disabling, Other)
  Sender: FDA-Public Use
  Company Number: US-ACTELION-A-US2011-49161

PATIENT

DRUGS (3)
  1. TRACLEER [Suspect]
     Dosage: 62.5 MG, BID
     Route: 048
     Dates: start: 20090616, end: 20090826
  2. TRACLEER [Suspect]
     Indication: PULMONARY ARTERIAL HYPERTENSION
     Dosage: 125 MG, BID
     Route: 048
     Dates: start: 20090827, end: 20111213
  3. COUMADIN [Concomitant]

REACTIONS (24)
  - SEPSIS [None]
  - THROMBOCYTOPENIA [None]
  - ABDOMINAL PAIN UPPER [None]
  - DIALYSIS [None]
  - ASPARTATE AMINOTRANSFERASE INCREASED [None]
  - CHOLECYSTITIS [None]
  - CHOLANGITIS [None]
  - OBSTRUCTION GASTRIC [None]
  - SYNCOPE [None]
  - HEPATIC FAILURE [None]
  - STENT PLACEMENT [None]
  - GALLBLADDER OPERATION [None]
  - CELLULITIS [None]
  - CHOLECYSTECTOMY [None]
  - BLOOD ALKALINE PHOSPHATASE INCREASED [None]
  - BLOOD BILIRUBIN INCREASED [None]
  - BACTERAEMIA [None]
  - ENTEROCOCCAL INFECTION [None]
  - CHOLELITHIASIS [None]
  - VASCULAR ACCESS COMPLICATION [None]
  - MULTI-ORGAN FAILURE [None]
  - ALANINE AMINOTRANSFERASE INCREASED [None]
  - URINARY TRACT INFECTION [None]
  - SHUNT INFECTION [None]
